FAERS Safety Report 5223382-X (Version None)
Quarter: 2007Q1

REPORT INFORMATION
  Report Type: 
  Country: None (occurrence: None)
  Receive Date: 20070129
  Receipt Date: 20070119
  Transmission Date: 20070707
  Serious: Yes (Disabling, Congenital Anomaly)
  Sender: FDA-Public Use
  Company Number: FR-ABBOTT-07P-056-0356423-00

PATIENT
  Sex: Male

DRUGS (1)
  1. DEPAKENE [Suspect]
     Indication: DRUG EXPOSURE DURING PREGNANCY

REACTIONS (13)
  - AUTISM SPECTRUM DISORDER [None]
  - DEVELOPMENTAL DELAY [None]
  - DRUG WITHDRAWAL SYNDROME NEONATAL [None]
  - DYSKINESIA [None]
  - FEEDING DISORDER NEONATAL [None]
  - HEAD TITUBATION [None]
  - HYPOTENSION [None]
  - MYOCLONIC EPILEPSY [None]
  - SELF MUTILATION [None]
  - SLEEP DISORDER [None]
  - SOCIAL AVOIDANT BEHAVIOUR [None]
  - SPEECH DISORDER DEVELOPMENTAL [None]
  - STEREOTYPY [None]
